FAERS Safety Report 13820736 (Version 7)
Quarter: 2018Q1

REPORT INFORMATION
  Report Type: Report from Study
  Country: CA (occurrence: CA)
  Receive Date: 20170801
  Receipt Date: 20180207
  Transmission Date: 20180508
  Serious: Yes (Other)
  Sender: FDA-Public Use
  Company Number: PHHY2017CA103367

PATIENT
  Age: 46 Year
  Sex: Female

DRUGS (3)
  1. CIPROFLOXACIN. [Suspect]
     Active Substance: CIPROFLOXACIN
     Indication: CYSTITIS
  2. GILENYA [Suspect]
     Active Substance: FINGOLIMOD HYDROCHLORIDE
     Indication: PRODUCT USED FOR UNKNOWN INDICATION
     Dosage: UNK
     Route: 048
     Dates: start: 20170413, end: 20170726
  3. CIPROFLOXACIN. [Suspect]
     Active Substance: CIPROFLOXACIN
     Indication: KIDNEY INFECTION
     Dosage: UNK
     Route: 065

REACTIONS (12)
  - Clostridium difficile infection [Unknown]
  - Palpitations [Unknown]
  - Urinary tract infection bacterial [Recovered/Resolved]
  - Cystitis [Recovered/Resolved]
  - Urinary tract infection [Unknown]
  - Renal disorder [Unknown]
  - Diarrhoea [Not Recovered/Not Resolved]
  - Nausea [Unknown]
  - Gastrointestinal infection [Unknown]
  - Heart rate decreased [Unknown]
  - Kidney infection [Recovered/Resolved]
  - Bladder pain [Unknown]

NARRATIVE: CASE EVENT DATE: 2017
